FAERS Safety Report 7709554-0 (Version None)
Quarter: 2011Q3

REPORT INFORMATION
  Report Type: 
  Country: None (occurrence: None)
  Receive Date: 20110825
  Receipt Date: 20110812
  Transmission Date: 20111222
  Serious: Yes (Other)
  Sender: FDA-Public Use
  Company Number: JP-CELGENEUS-087-50794-11081860

PATIENT
  Sex: Male

DRUGS (9)
  1. VIDAZA [Suspect]
     Dosage: 75 MILLIGRAM/SQ. METER
     Route: 041
     Dates: start: 20110530, end: 20110607
  2. DECADRON [Concomitant]
     Route: 065
     Dates: start: 20110402, end: 20110403
  3. VIDAZA [Suspect]
     Dosage: 75 MILLIGRAM/SQ. METER
     Route: 041
     Dates: start: 20110328, end: 20110403
  4. ALOXI [Concomitant]
     Route: 065
     Dates: start: 20110328, end: 20110328
  5. DEXAMETHASONE SODIUM PHOSPHATE [Concomitant]
     Route: 065
     Dates: start: 20110328, end: 20110328
  6. DECADRON [Concomitant]
     Route: 065
     Dates: start: 20110329, end: 20110330
  7. VIDAZA [Suspect]
     Dosage: 75 MILLIGRAM/SQ. METER
     Route: 041
     Dates: start: 20110425, end: 20110501
  8. DECADRON [Concomitant]
     Route: 065
     Dates: start: 20110331, end: 20110401
  9. DECADRON [Concomitant]
     Route: 065
     Dates: start: 20110404, end: 20110405

REACTIONS (5)
  - WHITE BLOOD CELL COUNT DECREASED [None]
  - HAEMOGLOBIN DECREASED [None]
  - CEREBRAL INFARCTION [None]
  - RED BLOOD CELL COUNT DECREASED [None]
  - PLATELET COUNT DECREASED [None]
